FAERS Safety Report 8044565-X (Version None)
Quarter: 2012Q1

REPORT INFORMATION
  Report Type: 
  Country: None (occurrence: None)
  Receive Date: 20120113
  Receipt Date: 20120113
  Transmission Date: 20120608
  Serious: Yes (Death, Life-Threatening, Hospitalization)
  Sender: FDA-Public Use
  Company Number: None

PATIENT
  Age: 59 Year
  Sex: Female
  Weight: 54.884 kg

DRUGS (3)
  1. BEVACIZUMAB [Suspect]
     Indication: LUNG ADENOCARCINOMA METASTATIC
     Dosage: 15MG/KG
     Route: 042
     Dates: start: 20110512, end: 20110630
  2. CARBOPLATIN [Concomitant]
     Route: 042
  3. PEMETREXED [Concomitant]

REACTIONS (2)
  - HAEMOPTYSIS [None]
  - PULMONARY HAEMORRHAGE [None]
